FAERS Safety Report 9390860 (Version 3)
Quarter: 2013Q3

REPORT INFORMATION
  Report Type: Spontaneous
  Country: US (occurrence: None)
  Receive Date: 20130705
  Receipt Date: 20130913
  Transmission Date: 20140515
  Serious: Yes (Other)
  Sender: FDA-Public Use
  Company Number: ACO_37054_2013

PATIENT
  Age: 66 Year
  Sex: Female

DRUGS (8)
  1. AMPYRA (DALFAMPRIDINE) TABLET, 10MG [Suspect]
     Indication: PRODUCT USED FOR UNKNOWN INDICATION
     Route: 048
     Dates: start: 20100720, end: 20130621
  2. AMPYRA (DALFAMPRIDINE) TABLET, 10MG [Suspect]
     Indication: GAIT DISTURBANCE
     Route: 048
     Dates: start: 20100720, end: 20130621
  3. COPAXONE (GLATIRAMER ACETATE) [Concomitant]
  4. VALSARTAN HCT (HYDROCHLOROTHIAZIDE, VALSARTAN) [Concomitant]
  5. TIZANIDINE (TIZANIDINE HYDROCHLORIDE) [Concomitant]
  6. OXYBUTYNIN CHLORIDE (OXYBUTYNIN HYDROCHLORIDE) [Concomitant]
  7. DILTIAZEM CD (DILTIAZEM HYDROCHLORIDE) [Concomitant]
  8. PRAVASTATIN (PRAVASTATIN SODIUM) [Concomitant]

REACTIONS (5)
  - Convulsion [None]
  - Type 2 diabetes mellitus [None]
  - Fall [None]
  - Tongue injury [None]
  - Urinary tract infection [None]
